FAERS Safety Report 5689905-1 (Version None)
Quarter: 2008Q1

REPORT INFORMATION
  Report Type: 
  Country: None (occurrence: None)
  Receive Date: 20080331
  Receipt Date: 20080331
  Transmission Date: 20080703
  Serious: Yes (Other)
  Sender: FDA-Public Use
  Company Number: None

PATIENT
  Age: 7 Year
  Sex: Male
  Weight: 22.6799 kg

DRUGS (1)
  1. SINGULAIR [Suspect]
     Indication: HYPERSENSITIVITY
     Dosage: ONE 5 MG CHEWABLE TABLET NIGHTLY PO
     Route: 048
     Dates: start: 20050901, end: 20080327

REACTIONS (5)
  - AGGRESSION [None]
  - AGITATION [None]
  - FEELING ABNORMAL [None]
  - MOOD SWINGS [None]
  - THINKING ABNORMAL [None]
